FAERS Safety Report 10265444 (Version 1)
Quarter: 2014Q2

REPORT INFORMATION
  Report Type: Spontaneous
  Country: US (occurrence: US)
  Receive Date: 20140627
  Receipt Date: 20140627
  Transmission Date: 20141212
  Serious: No
  Sender: FDA-Public Use
  Company Number: US-009507513-1406USA012399

PATIENT
  Age: 54 Year
  Sex: Female

DRUGS (2)
  1. PEGINTRON [Suspect]
     Indication: HEPATITIS C
     Dosage: 1 INJECTION WEEKLY
  2. RIBAVIRIN (WARRICK) [Suspect]
     Dosage: UNK

REACTIONS (3)
  - Headache [Unknown]
  - Drug dose omission [Unknown]
  - Product quality issue [Unknown]
